FAERS Safety Report 6923294-7 (Version None)
Quarter: 2010Q3

REPORT INFORMATION
  Report Type: 
  Country: None (occurrence: None)
  Receive Date: 20100813
  Receipt Date: 20100805
  Transmission Date: 20110219
  Serious: Yes (Other)
  Sender: FDA-Public Use
  Company Number: JP-ROCHE-720394

PATIENT
  Sex: Female
  Weight: 48 kg

DRUGS (14)
  1. TOCILIZUMAB [Suspect]
     Indication: RHEUMATOID ARTHRITIS
     Route: 041
     Dates: start: 20080704, end: 20080704
  2. TOCILIZUMAB [Suspect]
     Route: 041
     Dates: start: 20080801, end: 20080801
  3. TOCILIZUMAB [Suspect]
     Route: 041
     Dates: start: 20080829, end: 20080829
  4. TOCILIZUMAB [Suspect]
     Route: 041
     Dates: start: 20080926, end: 20080926
  5. TOCILIZUMAB [Suspect]
     Route: 041
     Dates: start: 20081024, end: 20081024
  6. TOCILIZUMAB [Suspect]
     Route: 041
     Dates: start: 20081121, end: 20081121
  7. TOCILIZUMAB [Suspect]
     Route: 041
     Dates: start: 20081219, end: 20081219
  8. TOCILIZUMAB [Suspect]
     Route: 041
     Dates: start: 20090116
  9. RHEUMATREX [Concomitant]
     Route: 048
  10. BREDININ [Concomitant]
     Route: 048
  11. PREDONINE [Concomitant]
     Route: 048
  12. NABOAL [Concomitant]
     Dosage: DRUG: DICLOFENAC SODIUM
     Route: 048
  13. SLOW-FE [Concomitant]
     Route: 048
  14. GASTER D [Concomitant]
     Route: 048

REACTIONS (1)
  - WHITE BLOOD CELL COUNT DECREASED [None]
